FAERS Safety Report 20864879 (Version 1)
Quarter: 2022Q2

REPORT INFORMATION
  Report Type: Spontaneous
  Country: ES (occurrence: ES)
  Receive Date: 20220524
  Receipt Date: 20220524
  Transmission Date: 20220721
  Serious: Yes (Hospitalization, Other)
  Sender: FDA-Public Use
  Company Number: ES-GILEAD-2022-0582403

PATIENT
  Age: 28 Year
  Sex: Male

DRUGS (1)
  1. STRIBILD [Suspect]
     Active Substance: COBICISTAT\ELVITEGRAVIR\EMTRICITABINE\TENOFOVIR DISOPROXIL FUMARATE
     Indication: Product used for unknown indication
     Dosage: 150MG/150MG/200MG/245MG , 1 DF
     Route: 048
     Dates: start: 20220316, end: 20220429

REACTIONS (1)
  - Myopericarditis [Recovering/Resolving]

NARRATIVE: CASE EVENT DATE: 20220429
